FAERS Safety Report 9563260 (Version 1)
Quarter: 2013Q3

REPORT INFORMATION
  Report Type: Spontaneous
  Country: FR (occurrence: FR)
  Receive Date: 20130927
  Receipt Date: 20130927
  Transmission Date: 20140515
  Serious: Yes (Hospitalization)
  Sender: FDA-Public Use
  Company Number: PHHY2013FR107530

PATIENT
  Age: 91 Year
  Sex: Male

DRUGS (5)
  1. ACLASTA [Suspect]
     Dosage: 5 MG, UNK
     Route: 042
     Dates: start: 20110721
  2. LASILIX [Concomitant]
     Indication: INTERSTITIAL LUNG DISEASE
  3. LASILIX [Concomitant]
     Indication: CARDIAC FAILURE
  4. ROCEPHINE [Concomitant]
     Indication: INTERSTITIAL LUNG DISEASE
  5. ROCEPHINE [Concomitant]
     Indication: CARDIAC FAILURE

REACTIONS (3)
  - Lymphopenia [Not Recovered/Not Resolved]
  - Lung disorder [Recovering/Resolving]
  - Pyrexia [Recovered/Resolved]
